FAERS Safety Report 7518866-5 (Version None)
Quarter: 2011Q2

REPORT INFORMATION
  Report Type: 
  Country: None (occurrence: None)
  Receive Date: 20110523
  Receipt Date: 20110513
  Transmission Date: 20111010
  Serious: Yes (Hospitalization)
  Sender: FDA-Public Use
  Company Number: 2011AT000161

PATIENT
  Age: 55 Year
  Sex: Male

DRUGS (1)
  1. THEOPHYLLINE [Suspect]
     Indication: PRODUCT USED FOR UNKNOWN INDICATION
     Dosage: PO
     Route: 048

REACTIONS (5)
  - CEREBRAL ATROPHY [None]
  - NERVOUS SYSTEM DISORDER [None]
  - AMNESTIC DISORDER [None]
  - TOXICITY TO VARIOUS AGENTS [None]
  - STATUS EPILEPTICUS [None]
